FAERS Safety Report 10218786 (Version 1)
Quarter: 2014Q2

REPORT INFORMATION
  Report Type: Spontaneous
  Country: DE (occurrence: DE)
  Receive Date: 20140605
  Receipt Date: 20140605
  Transmission Date: 20141212
  Serious: Yes (Death, Other)
  Sender: FDA-Public Use
  Company Number: PHHY2014DE068432

PATIENT
  Sex: 0

DRUGS (1)
  1. METHYLPHENIDATE [Suspect]
     Route: 045

REACTIONS (3)
  - Toxicity to various agents [Fatal]
  - Drug abuse [Unknown]
  - Incorrect route of drug administration [Unknown]
